FAERS Safety Report 9416903 (Version 1)
Quarter: 2013Q3

REPORT INFORMATION
  Report Type: Spontaneous
  Country: IN (occurrence: IN)
  Receive Date: 20130724
  Receipt Date: 20130724
  Transmission Date: 20140515
  Serious: Yes (Life-Threatening)
  Sender: FDA-Public Use
  Company Number: IN-ROCHE-1252075

PATIENT
  Age: 63 Year
  Sex: Male

DRUGS (1)
  1. METALYSE [Suspect]
     Indication: CHEST PAIN
     Route: 065
     Dates: start: 20130708, end: 20130708

REACTIONS (1)
  - Electrocardiogram ST segment elevation [Unknown]
